FAERS Safety Report 4489500-6 (Version None)
Quarter: 2004Q4

REPORT INFORMATION
  Report Type: 
  Country: None (occurrence: None)
  Receive Date: 20041101
  Receipt Date: 20041027
  Transmission Date: 20050328
  Serious: Yes (Other)
  Sender: FDA-Public Use
  Company Number: 200414100FR

PATIENT
  Age: 25 Year
  Sex: Male

DRUGS (1)
  1. LOVENOX [Suspect]
     Route: 058
     Dates: start: 20041017

REACTIONS (1)
  - THROMBOCYTHAEMIA [None]
